FAERS Safety Report 8903336 (Version 1)
Quarter: 2012Q4

REPORT INFORMATION
  Report Type: 
  Country: NL (occurrence: NL)
  Receive Date: 20121113
  Receipt Date: 20121113
  Transmission Date: 20130627
  Serious: Yes (Death, Hospitalization, Other)
  Sender: FDA-Public Use
  Company Number: PHHY2012NL104289

PATIENT
  Age: 19 Year
  Sex: Male

DRUGS (1)
  1. METHYLPREDNISOLONE [Suspect]
     Dosage: 1000 mg per day
     Route: 042

REACTIONS (8)
  - Intracranial venous sinus thrombosis [Fatal]
  - Altered state of consciousness [Fatal]
  - Grand mal convulsion [Fatal]
  - Brain herniation [Fatal]
  - Cerebral haemorrhage [Fatal]
  - Brain oedema [Fatal]
  - Somnolence [Fatal]
  - Post lumbar puncture syndrome [Unknown]
